FAERS Safety Report 9998592 (Version 1)
Quarter: 2014Q1

REPORT INFORMATION
  Report Type: Spontaneous
  Country: US (occurrence: US)
  Receive Date: 20140312
  Receipt Date: 20140312
  Transmission Date: 20141002
  Serious: No
  Sender: FDA-Public Use
  Company Number: US-BIOGENIDEC-2014BI019000

PATIENT
  Sex: Female

DRUGS (16)
  1. TECFIDERA [Suspect]
     Indication: MULTIPLE SCLEROSIS
     Route: 048
  2. B 12-ACTIVE [Concomitant]
  3. CHLOR-TRIMETON ALLERGY [Concomitant]
  4. ESTRACE [Concomitant]
  5. FERROUS FUMARATE [Concomitant]
  6. FISH OIL BURP- LESS [Concomitant]
  7. SERTRALINE HCL [Concomitant]
  8. SIMVASTATIN [Concomitant]
  9. VICODIN [Concomitant]
  10. VITAMIN C ER [Concomitant]
  11. MELATONIN [Concomitant]
  12. OMEPRAZOLE MAGNESIUM [Concomitant]
  13. OXYBUTYNIN CHLORIDE [Concomitant]
  14. PLAVIX [Concomitant]
  15. ROPINIROLE HCL ER [Concomitant]
  16. L-THEANINE [Concomitant]

REACTIONS (3)
  - Urinary incontinence [Unknown]
  - Pain in extremity [Unknown]
  - Depression [Unknown]
